FAERS Safety Report 22531992 (Version 2)
Quarter: 2023Q2

REPORT INFORMATION
  Report Type: Spontaneous
  Country: FR (occurrence: FR)
  Receive Date: 20230607
  Receipt Date: 20230619
  Transmission Date: 20230722
  Serious: Yes (Death, Hospitalization)
  Sender: FDA-Public Use
  Company Number: FR-JNJFOC-20230321645

PATIENT
  Age: 90 Year
  Sex: Male
  Weight: 73 kg

DRUGS (3)
  1. TECLISTAMAB [Suspect]
     Active Substance: TECLISTAMAB
     Indication: Plasma cell myeloma refractory
     Dosage: 1ST STEP-UP DOSE, CYCLE 1 DAY1
     Route: 058
     Dates: start: 20230303, end: 20230303
  2. TECLISTAMAB [Suspect]
     Active Substance: TECLISTAMAB
     Route: 058
     Dates: start: 20230308
  3. TECLISTAMAB [Suspect]
     Active Substance: TECLISTAMAB
     Dosage: DAY-03
     Route: 058
     Dates: start: 202303, end: 20230308

REACTIONS (3)
  - COVID-19 [Fatal]
  - Plasma cell myeloma [Fatal]
  - Cytokine release syndrome [Recovered/Resolved]

NARRATIVE: CASE EVENT DATE: 20230304
